FAERS Safety Report 19189638 (Version 1)
Quarter: 2021Q2

REPORT INFORMATION
  Report Type: Spontaneous
  Country: US (occurrence: US)
  Receive Date: 20210428
  Receipt Date: 20210428
  Transmission Date: 20210717
  Serious: Yes (Other)
  Sender: FDA-Public Use
  Company Number: None

PATIENT
  Age: 55 Year
  Sex: Female
  Weight: 48 kg

DRUGS (7)
  1. NUZYRA [Suspect]
     Active Substance: OMADACYCLINE
     Indication: MYCOBACTERIUM ABSCESSUS INFECTION
     Route: 048
     Dates: start: 20201215
  2. TACROLIMUS. [Concomitant]
     Active Substance: TACROLIMUS
  3. ONDANESTRON [Concomitant]
  4. MYFORTIC [Concomitant]
     Active Substance: MYCOPHENOLATE SODIUM
  5. PREDNISONE. [Concomitant]
     Active Substance: PREDNISONE
  6. OMEPRAZOLE. [Concomitant]
     Active Substance: OMEPRAZOLE
  7. ATOVAQUONE. [Concomitant]
     Active Substance: ATOVAQUONE

REACTIONS (1)
  - Nausea [None]

NARRATIVE: CASE EVENT DATE: 20210427
